FAERS Safety Report 10480549 (Version 3)
Quarter: 2015Q2

REPORT INFORMATION
  Report Type: Spontaneous
  Country: JP (occurrence: None)
  Receive Date: 20140925
  Receipt Date: 20150617
  Transmission Date: 20150821
  Serious: Yes (Hospitalization, Other)
  Sender: FDA-Public Use
  Company Number: 2014MPI00784

PATIENT
  Age: 66 Year
  Sex: Male
  Weight: 69.8 kg

DRUGS (7)
  1. FAMOTIDINE. [Concomitant]
     Active Substance: FAMOTIDINE
  2. ACETAMINOPHEN (PARACETAMOL) [Concomitant]
     Active Substance: ACETAMINOPHEN
  3. BARACLUDE (ENTECAVIR) [Concomitant]
     Active Substance: ENTECAVIR
  4. ADCETRIS [Suspect]
     Active Substance: BRENTUXIMAB VEDOTIN
     Indication: ANAPLASTIC LARGE-CELL LYMPHOMA
     Dosage: 1.4 MG/KG, Q21D
     Route: 041
     Dates: start: 20140605, end: 20140605
  5. LAGNOS (LACTULOSE) [Concomitant]
  6. LACTULOSE. [Concomitant]
     Active Substance: LACTULOSE
  7. ANTIHISTAMINES [Concomitant]
     Active Substance: ANTIHISTAMINES NOS

REACTIONS (6)
  - Malaise [None]
  - Neutropenia [None]
  - Weight decreased [None]
  - Sepsis [None]
  - Rectal polyp [None]
  - Peripheral sensory neuropathy [None]

NARRATIVE: CASE EVENT DATE: 20140608
